FAERS Safety Report 12895532 (Version 1)
Quarter: 2016Q4

REPORT INFORMATION
  Report Type: Spontaneous
  Country: JP (occurrence: JP)
  Receive Date: 20161030
  Receipt Date: 20161030
  Transmission Date: 20170207
  Serious: Yes (Death)
  Sender: FDA-Public Use
  Company Number: PHJP2016JP031008

PATIENT
  Age: 87 Year
  Sex: Male

DRUGS (2)
  1. NEORAL [Suspect]
     Active Substance: CYCLOSPORINE
     Indication: ANTINEUTROPHIL CYTOPLASMIC ANTIBODY
  2. NEORAL [Suspect]
     Active Substance: CYCLOSPORINE
     Indication: VASCULITIS
     Dosage: 75 MG, UNK
     Route: 048
     Dates: start: 20161019

REACTIONS (2)
  - Product use issue [Unknown]
  - Vasculitis [Fatal]
